FAERS Safety Report 5370985-8 (Version None)
Quarter: 2007Q2

REPORT INFORMATION
  Report Type: 
  Country: None (occurrence: None)
  Receive Date: 20070626
  Receipt Date: 20070614
  Transmission Date: 20071010
  Serious: Yes (Hospitalization)
  Sender: FDA-Public Use
  Company Number: CH-PFIZER INC-2007049025

PATIENT
  Sex: Male
  Weight: 85 kg

DRUGS (11)
  1. SU-011,248 [Suspect]
     Indication: RENAL CELL CARCINOMA STAGE UNSPECIFIED
     Route: 048
     Dates: start: 20070323, end: 20070613
  2. ZOVIRAX [Concomitant]
     Route: 042
     Dates: start: 20070613, end: 20070614
  3. KONAKION [Concomitant]
     Dates: start: 20070614, end: 20070614
  4. TORSEMIDE [Concomitant]
     Route: 048
  5. ASPIRIN [Concomitant]
     Route: 048
  6. BENERVA [Concomitant]
     Route: 048
  7. BECOZYME [Concomitant]
     Route: 048
  8. ENATEC [Concomitant]
     Route: 048
  9. LESCOL [Concomitant]
     Route: 048
  10. INDOCID [Concomitant]
     Route: 048
     Dates: start: 20070611, end: 20070613
  11. BELOC ZOK [Concomitant]
     Route: 048

REACTIONS (1)
  - CYTOLYTIC HEPATITIS [None]
